FAERS Safety Report 9281341 (Version 2)
Quarter: 2013Q3

REPORT INFORMATION
  Report Type: Spontaneous
  Country: US (occurrence: US)
  Receive Date: 20130509
  Receipt Date: 20130805
  Transmission Date: 20140515
  Serious: Yes (Life-Threatening, Hospitalization, Other)
  Sender: FDA-Public Use
  Company Number: US-ELI_LILLY_AND_COMPANY-US201304008763

PATIENT
  Age: 37 Week
  Sex: 0

DRUGS (2)
  1. CYMBALTA [Suspect]
     Indication: DEPRESSION
     Dosage: UNK UNK, UNKNOWN
     Route: 064
     Dates: end: 201203
  2. HUMIRA                                  /USA/ [Concomitant]
     Indication: CROHN^S DISEASE
     Dosage: 40 MG, 2/M
     Route: 064
     Dates: start: 2011, end: 201203

REACTIONS (5)
  - Apnoea neonatal [Recovered/Resolved]
  - Foetal heart rate decreased [Recovered/Resolved]
  - Neonatal respiratory distress syndrome [Recovered/Resolved]
  - Feeding disorder neonatal [Recovered/Resolved]
  - Foetal exposure during pregnancy [Recovered/Resolved]
